FAERS Safety Report 4865324-2 (Version None)
Quarter: 2005Q4

REPORT INFORMATION
  Report Type: 
  Country: None (occurrence: None)
  Receive Date: 20051221
  Receipt Date: 20051221
  Transmission Date: 20060501
  Serious: Yes (Other)
  Sender: FDA-Public Use
  Company Number: None

PATIENT
  Age: 47 Year
  Sex: Female
  Weight: 61.2356 kg

DRUGS (3)
  1. TOPAMAX SPRINKLE [Suspect]
     Indication: MIGRAINE
     Dosage: 1/2 TO 2 QHS PO
     Route: 048
     Dates: start: 20051105, end: 20051111
  2. WELLBUTRIN [Concomitant]
  3. LEXAPRO [Concomitant]

REACTIONS (4)
  - DRUG HYPERSENSITIVITY [None]
  - RASH GENERALISED [None]
  - THERAPY NON-RESPONDER [None]
  - URTICARIA [None]
